FAERS Safety Report 9407463 (Version 2)
Quarter: 2013Q3

REPORT INFORMATION
  Report Type: Spontaneous
  Country: DE (occurrence: DE)
  Receive Date: 20130718
  Receipt Date: 20130729
  Transmission Date: 20140515
  Serious: Yes (Other)
  Sender: FDA-Public Use
  Company Number: DE-B.I. PHARMACEUTICALS,INC./RIDGEFIELD-2013-DE-01852DE

PATIENT
  Age: 82 Year
  Sex: Male
  Weight: 74 kg

DRUGS (5)
  1. PRADAXA [Suspect]
     Indication: ATRIAL FIBRILLATION
     Dosage: 220 MG
     Route: 048
     Dates: start: 201211
  2. PRADAXA [Suspect]
     Indication: TRANSIENT ISCHAEMIC ATTACK
  3. SIMVASTATIN [Concomitant]
     Indication: ARTERIAL STENOSIS
     Dosage: 20 MG
     Route: 048
     Dates: start: 2004
  4. CANDESARTAN [Concomitant]
     Indication: HYPERTENSION
     Dosage: 8 MG
     Route: 048
     Dates: start: 2004
  5. BISOPROLOL [Concomitant]
     Indication: ARRHYTHMIA
     Dosage: 2.5 MG
     Route: 048
     Dates: start: 201210

REACTIONS (5)
  - Transient ischaemic attack [Recovered/Resolved]
  - Hemiparesis [Recovered/Resolved]
  - Dizziness [Recovered/Resolved]
  - Ischaemia [Recovered/Resolved]
  - Cerebellar syndrome [Recovered/Resolved]
